FAERS Safety Report 24717435 (Version 1)
Quarter: 2024Q4

REPORT INFORMATION
  Report Type: Spontaneous
  Country: US (occurrence: None)
  Receive Date: 20241210
  Receipt Date: 20241210
  Transmission Date: 20250115
  Serious: Yes (Other)
  Sender: Public
  Company Number: None

PATIENT
  Sex: Female

DRUGS (6)
  1. TALTZ [Suspect]
     Active Substance: IXEKIZUMAB
     Indication: Psoriatic arthropathy
     Route: 058
     Dates: start: 20230315
  2. AZELAIC ACID [Concomitant]
     Active Substance: AZELAIC ACID
  3. ESTRADIOL [Concomitant]
     Active Substance: ESTRADIOL
  4. PIMECROMLIMUS [Concomitant]
  5. TRIAMCIN ACE [Concomitant]
  6. TRIAMCINOLONE ACETONIDE [Concomitant]
     Active Substance: TRIAMCINOLONE ACETONIDE

REACTIONS (1)
  - Surgery [None]
